FAERS Safety Report 5585149-2 (Version None)
Quarter: 2008Q1

REPORT INFORMATION
  Report Type: 
  Country: None (occurrence: None)
  Receive Date: 20080104
  Receipt Date: 20080104
  Transmission Date: 20080703
  Serious: Yes (Hospitalization)
  Sender: FDA-Public Use
  Company Number: None

PATIENT
  Sex: Female

DRUGS (15)
  1. PHENYTOIN [Suspect]
     Indication: CONVULSION
     Dates: start: 20070501, end: 20070515
  2. PHENYTOIN [Suspect]
  3. COUMADIN [Concomitant]
  4. KEPPRA [Concomitant]
  5. NORVASC [Concomitant]
  6. METOPROLOL [Concomitant]
  7. DAPSONE [Concomitant]
  8. COZAAR [Concomitant]
  9. NOVOLOG [Concomitant]
  10. NPH [Concomitant]
  11. ARANESP [Concomitant]
  12. ACYCLOVIR [Concomitant]
  13. NYSTATIN [Concomitant]
  14. IMDUR [Concomitant]
  15. CELLCEPT [Concomitant]

REACTIONS (1)
  - PYREXIA [None]
